FAERS Safety Report 10009300 (Version 2)
Quarter: 2014Q1

REPORT INFORMATION
  Report Type: Spontaneous
  Country: US (occurrence: US)
  Receive Date: 20140313
  Receipt Date: 20140313
  Transmission Date: 20141002
  Serious: No
  Sender: FDA-Public Use
  Company Number: US-GILEAD-2013-0072597

PATIENT
  Sex: Female

DRUGS (3)
  1. LETAIRIS [Suspect]
     Indication: MIXED CONNECTIVE TISSUE DISEASE
     Dosage: 5 MG, QD
     Dates: start: 20130315
  2. LETAIRIS [Suspect]
     Indication: PULMONARY HYPERTENSION
  3. TYVASO [Suspect]
     Dosage: UNK
     Route: 055

REACTIONS (2)
  - Cough [Recovered/Resolved]
  - Dysphonia [Unknown]
